FAERS Safety Report 6622500-6 (Version None)
Quarter: 2010Q1

REPORT INFORMATION
  Report Type: 
  Country: None (occurrence: None)
  Receive Date: 20100310
  Receipt Date: 20100202
  Transmission Date: 20100710
  Serious: No
  Sender: FDA-Public Use
  Company Number: US-BIOGENIDEC-2010BI003597

PATIENT
  Sex: Male

DRUGS (1)
  1. AVONEX [Suspect]
     Indication: MULTIPLE SCLEROSIS
     Route: 030
     Dates: start: 20020101, end: 20100101

REACTIONS (5)
  - BACK DISORDER [None]
  - BIPOLAR DISORDER [None]
  - BONE PAIN [None]
  - CONFUSIONAL STATE [None]
  - HYPOAESTHESIA [None]
